FAERS Safety Report 7270179-5 (Version None)
Quarter: 2010Q4

REPORT INFORMATION
  Report Type: 
  Country: None (occurrence: None)
  Receive Date: 20101130
  Receipt Date: 20090828
  Transmission Date: 20110411
  Serious: Yes (Other)
  Sender: FDA-Public Use
  Company Number: 2009-197158-NL

PATIENT
  Age: 36 Year
  Sex: Female
  Weight: 113.3993 kg

DRUGS (5)
  1. NUVARING [Suspect]
     Indication: CONTRACEPTION
     Dosage: 1 DF; QW; VAG
     Route: 067
     Dates: start: 20060901, end: 20061201
  2. BENADRYL [Concomitant]
  3. IBUPROFEN [Concomitant]
  4. SUDAFED 12 HOUR [Concomitant]
  5. RHINOCORT [Concomitant]

REACTIONS (1)
  - DEEP VEIN THROMBOSIS [None]
